FAERS Safety Report 11091391 (Version 1)
Quarter: 2015Q2

REPORT INFORMATION
  Report Type: Spontaneous
  Country: TW (occurrence: TW)
  Receive Date: 20150505
  Receipt Date: 20150505
  Transmission Date: 20150821
  Serious: Yes (Other)
  Sender: FDA-Public Use
  Company Number: TW-PFIZER INC-2015148481

PATIENT
  Age: 40 Year
  Sex: Male

DRUGS (2)
  1. AXITINIB [Suspect]
     Active Substance: AXITINIB
     Indication: RENAL CELL CARCINOMA STAGE IV
     Dosage: 5 MG, BID
     Dates: start: 201303
  2. AXITINIB [Suspect]
     Active Substance: AXITINIB
     Dosage: 7.5 MG, BID

REACTIONS (1)
  - Spinal cord compression [Unknown]
